FAERS Safety Report 20247139 (Version 1)
Quarter: 2021Q4

REPORT INFORMATION
  Report Type: Report from Study
  Country: US (occurrence: US)
  Receive Date: 20211229
  Receipt Date: 20211229
  Transmission Date: 20220303
  Serious: Yes (Other)
  Sender: FDA-Public Use
  Company Number: US-TAKEDA-2021TUS081665

PATIENT
  Sex: Female
  Weight: 14.69 kg

DRUGS (3)
  1. HUMAN IMMUNOGLOBULIN G [Suspect]
     Active Substance: HUMAN IMMUNOGLOBULIN G
     Indication: Non-Hodgkin^s lymphoma
     Dosage: 6 GRAM, Q4WEEKS
     Route: 042
     Dates: start: 20211112
  2. MERCAPTOPURINE [Concomitant]
     Active Substance: MERCAPTOPURINE
  3. METHOTREXATE [Concomitant]
     Active Substance: METHOTREXATE

REACTIONS (1)
  - Metapneumovirus pneumonia [Unknown]
